FAERS Safety Report 7293550-4 (Version None)
Quarter: 2011Q1

REPORT INFORMATION
  Report Type: 
  Country: None (occurrence: None)
  Receive Date: 20110215
  Receipt Date: 20110208
  Transmission Date: 20110831
  Serious: Yes (Disabling, Other)
  Sender: FDA-Public Use
  Company Number: CH-B.I. PHARMACEUTICALS,INC./RIDGEFIELD-2011-AP-00073SI

PATIENT
  Sex: Male
  Weight: 71 kg

DRUGS (3)
  1. SPIRIVA [Suspect]
     Indication: CHRONIC OBSTRUCTIVE PULMONARY DISEASE
     Dosage: 5 MCG
     Route: 055
     Dates: end: 20110101
  2. VENTOLIN [Concomitant]
     Dosage: 1-2 PUFFS IN CASE OF AN EMERGENCY
  3. SPIRIVA [Suspect]
     Indication: CHRONIC OBSTRUCTIVE PULMONARY DISEASE
     Dosage: 18 MCG
     Route: 055
     Dates: start: 20091101

REACTIONS (3)
  - ANAL INFLAMMATION [None]
  - ANAL SPHINCTER ATONY [None]
  - FREQUENT BOWEL MOVEMENTS [None]
